FAERS Safety Report 5151367-0 (Version None)
Quarter: 2006Q4

REPORT INFORMATION
  Report Type: 
  Country: None (occurrence: None)
  Receive Date: 20061115
  Receipt Date: 20061103
  Transmission Date: 20070319
  Serious: Yes (Disabling)
  Sender: FDA-Public Use
  Company Number: PHBS2006CH17122

PATIENT
  Age: 50 Year
  Sex: Female

DRUGS (5)
  1. ZOMETA [Suspect]
     Indication: BREAST CANCER METASTATIC
     Dosage: 4 MG, PER MONTH
     Route: 042
     Dates: start: 20030101
  2. TAXOL [Concomitant]
     Indication: BREAST CANCER METASTATIC
     Route: 065
     Dates: start: 20040101
  3. HERCEPTIN [Concomitant]
     Indication: BREAST CANCER METASTATIC
     Route: 065
     Dates: start: 20040101
  4. NAVELBINE [Concomitant]
     Indication: BREAST CANCER METASTATIC
     Route: 065
     Dates: start: 20040101
  5. APROVEL [Concomitant]
     Indication: HYPERTENSION
     Route: 065

REACTIONS (4)
  - BONE LESION [None]
  - DENTAL CLEANING [None]
  - OSTEONECROSIS [None]
  - PERIODONTITIS [None]
